FAERS Safety Report 8721589 (Version 2)
Quarter: 2012Q4

REPORT INFORMATION
  Report Type: 
  Country: JP (occurrence: JP)
  Receive Date: 20120814
  Receipt Date: 20120903
  Transmission Date: 20130627
  Serious: Yes (Other)
  Sender: FDA-Public Use
  Company Number: JP-BRISTOL-MYERS SQUIBB COMPANY-16850299

PATIENT
  Age: 70 Year
  Sex: Male
  Weight: 78 kg

DRUGS (3)
  1. AVAPRO [Suspect]
     Indication: HYPERTENSION
     Route: 048
     Dates: start: 201201, end: 201207
  2. LIVALO [Concomitant]
     Route: 048
     Dates: start: 201201, end: 201207
  3. HARNAL [Concomitant]
     Dosage: Harnal D
     Route: 048
     Dates: start: 201201, end: 201207

REACTIONS (3)
  - Weight increased [Recovered/Resolved]
  - Gastroenteritis [Recovered/Resolved]
  - Oedema peripheral [Recovered/Resolved]
